FAERS Safety Report 8972140 (Version 1)
Quarter: 2012Q4

REPORT INFORMATION
  Report Type: 
  Country: US (occurrence: US)
  Receive Date: 20121219
  Receipt Date: 20121219
  Transmission Date: 20130627
  Serious: Yes (Hospitalization, Other)
  Sender: FDA-Public Use
  Company Number: US-ELI_LILLY_AND_COMPANY-US201212003946

PATIENT
  Sex: Female

DRUGS (3)
  1. HUMALOG LISPRO [Suspect]
     Dosage: UNK, prn
  2. LANTUS [Concomitant]
     Indication: TYPE 2 DIABETES MELLITUS
     Dosage: 15 u, bid
     Dates: start: 2007
  3. LANTUS [Concomitant]
     Dosage: 15 u, qd
     Dates: start: 2011

REACTIONS (4)
  - Loss of consciousness [Unknown]
  - Hypoxia [Unknown]
  - Blood glucose increased [Recovered/Resolved]
  - Visual impairment [Unknown]
